FAERS Safety Report 15059143 (Version 4)
Quarter: 2018Q4

REPORT INFORMATION
  Report Type: Report from Study
  Country: US (occurrence: US)
  Receive Date: 20180625
  Receipt Date: 20181126
  Transmission Date: 20190204
  Serious: Yes (Other)
  Sender: FDA-Public Use
  Company Number: US-JAZZ-2018-US-001255

PATIENT
  Sex: Female
  Weight: 126.7 kg

DRUGS (53)
  1. LYRICA [Suspect]
     Active Substance: PREGABALIN
     Indication: PRODUCT USED FOR UNKNOWN INDICATION
  2. NITROFURANTOIN. [Suspect]
     Active Substance: NITROFURANTOIN
     Indication: PRODUCT USED FOR UNKNOWN INDICATION
  3. CALCIUM [Concomitant]
     Active Substance: CALCIUM
  4. FERROUS SULFATE. [Concomitant]
     Active Substance: FERROUS SULFATE
  5. MOMETASONE FUROATE. [Concomitant]
     Active Substance: MOMETASONE FUROATE
  6. CALCIUM CITRATE [Concomitant]
     Active Substance: CALCIUM CITRATE
  7. LOPERAMIDE [Concomitant]
     Active Substance: LOPERAMIDE
  8. LOSARTAN POTASSIUM. [Concomitant]
     Active Substance: LOSARTAN POTASSIUM
  9. ZINC GLUCONATE [Concomitant]
     Active Substance: ZINC GLUCONATE
  10. KRILL OIL [Concomitant]
     Active Substance: DIETARY SUPPLEMENT
  11. NIFEDIPINE. [Concomitant]
     Active Substance: NIFEDIPINE
  12. TRAVATAN Z [Concomitant]
     Active Substance: TRAVOPROST
  13. VITAMIN D3 [Concomitant]
     Active Substance: CHOLECALCIFEROL
  14. IPRATROPIUM BROMIDE AND ALBUTEROL SULFATE [Concomitant]
     Active Substance: ALBUTEROL SULFATE\IPRATROPIUM BROMIDE
     Indication: PRODUCT USED FOR UNKNOWN INDICATION
  15. ERGOCALCIFEROL. [Concomitant]
     Active Substance: ERGOCALCIFEROL
     Indication: PRODUCT USED FOR UNKNOWN INDICATION
  16. XYZAL [Concomitant]
     Active Substance: LEVOCETIRIZINE DIHYDROCHLORIDE
     Indication: PRODUCT USED FOR UNKNOWN INDICATION
  17. XYREM [Suspect]
     Active Substance: SODIUM OXYBATE
     Indication: CATAPLEXY
  18. ADVAIR HFA [Concomitant]
     Active Substance: FLUTICASONE PROPIONATE\SALMETEROL XINAFOATE
  19. CLONAZEPAM. [Concomitant]
     Active Substance: CLONAZEPAM
  20. FOLIC ACID. [Concomitant]
     Active Substance: FOLIC ACID
  21. PRISTIQ EXTENDED-RELEASE [Concomitant]
     Active Substance: DESVENLAFAXINE SUCCINATE
  22. ZYRTEC [Concomitant]
     Active Substance: CETIRIZINE HYDROCHLORIDE
  23. XYREM [Suspect]
     Active Substance: SODIUM OXYBATE
     Indication: NARCOLEPSY
     Dosage: 4.5 G, BID
     Route: 048
     Dates: start: 201307
  24. ABILIFY [Concomitant]
     Active Substance: ARIPIPRAZOLE
  25. FEXOFENADINE HCL [Concomitant]
     Active Substance: FEXOFENADINE HYDROCHLORIDE
  26. LANSOPRAZOLE. [Concomitant]
     Active Substance: LANSOPRAZOLE
  27. POTASSIUM CL [Concomitant]
     Active Substance: POTASSIUM CHLORIDE
  28. VITAMIN B12 [Concomitant]
     Active Substance: CYANOCOBALAMIN
  29. TIZANIDINE HCL [Concomitant]
     Active Substance: TIZANIDINE HYDROCHLORIDE
  30. PRIMIDONE. [Concomitant]
     Active Substance: PRIMIDONE
  31. HYOSCINE [Concomitant]
     Active Substance: SCOPOLAMINE
     Indication: PRODUCT USED FOR UNKNOWN INDICATION
  32. COENZYME Q10 [Concomitant]
     Active Substance: UBIDECARENONE
  33. DIPHENHYDRAMINE HYDROCHLORIDE. [Concomitant]
     Active Substance: DIPHENHYDRAMINE HYDROCHLORIDE
  34. PROAIR HFA [Concomitant]
     Active Substance: ALBUTEROL SULFATE
  35. ARIPIPRAZOLE. [Concomitant]
     Active Substance: ARIPIPRAZOLE
     Indication: PRODUCT USED FOR UNKNOWN INDICATION
  36. PREVIDENT BOOSTER [Concomitant]
     Indication: PRODUCT USED FOR UNKNOWN INDICATION
  37. CIPROFLOXACIN. [Suspect]
     Active Substance: CIPROFLOXACIN
     Indication: PRODUCT USED FOR UNKNOWN INDICATION
     Dosage: UNK
  38. OXYCONTIN [Suspect]
     Active Substance: OXYCODONE HYDROCHLORIDE
     Indication: PRODUCT USED FOR UNKNOWN INDICATION
  39. MODAFINIL. [Suspect]
     Active Substance: MODAFINIL
     Indication: PRODUCT USED FOR UNKNOWN INDICATION
  40. SPIRIVA [Concomitant]
     Active Substance: TIOTROPIUM BROMIDE MONOHYDRATE
  41. FUROSEMIDE. [Concomitant]
     Active Substance: FUROSEMIDE
  42. QVAR [Concomitant]
     Active Substance: BECLOMETHASONE DIPROPIONATE
  43. PROPRANOLOL [Concomitant]
     Active Substance: PROPRANOLOL HYDROCHLORIDE
  44. QNASL [Concomitant]
     Active Substance: BECLOMETHASONE DIPROPIONATE
  45. IBUPROFEN. [Concomitant]
     Active Substance: IBUPROFEN
  46. SINGULAIR [Concomitant]
     Active Substance: MONTELUKAST SODIUM
  47. BIOTIN [Concomitant]
     Active Substance: BIOTIN
  48. NUVIGIL [Suspect]
     Active Substance: ARMODAFINIL
     Indication: PRODUCT USED FOR UNKNOWN INDICATION
  49. ADDERALL [Concomitant]
     Active Substance: AMPHETAMINE ASPARTATE\AMPHETAMINE SULFATE\DEXTROAMPHETAMINE SACCHARATE\DEXTROAMPHETAMINE SULFATE
     Dosage: 30 MG, UNK
  50. LEVOCETIRIZINE [Concomitant]
     Active Substance: LEVOCETIRIZINE
  51. LEVOTHYROXINE. [Concomitant]
     Active Substance: LEVOTHYROXINE
  52. SALBUTAMOL [Concomitant]
     Active Substance: ALBUTEROL
     Indication: PRODUCT USED FOR UNKNOWN INDICATION
  53. DEXAMETHASONE SODIUM PHOSPHATE. [Concomitant]
     Active Substance: DEXAMETHASONE SODIUM PHOSPHATE
     Indication: PRODUCT USED FOR UNKNOWN INDICATION

REACTIONS (7)
  - Musculoskeletal pain [Unknown]
  - Tremor [Recovered/Resolved]
  - Rapid eye movement sleep behaviour disorder [Recovering/Resolving]
  - Rotator cuff syndrome [Unknown]
  - Arthritis [Unknown]
  - Thyroid disorder [Unknown]
  - Drug hypersensitivity [Unknown]
